FAERS Safety Report 6115737-6 (Version None)
Quarter: 2009Q1

REPORT INFORMATION
  Report Type: 
  Country: None (occurrence: None)
  Receive Date: 20090311
  Receipt Date: 20090304
  Transmission Date: 20090719
  Serious: Yes (Other)
  Sender: FDA-Public Use
  Company Number: CHPA2008US15066

PATIENT
  Age: 80 Year
  Sex: Male
  Weight: 77.1 kg

DRUGS (1)
  1. HYOSCINE HBR HYT [Suspect]
     Indication: MOTION SICKNESS
     Dosage: 1.5 MG, Q72H, TRANSDERMAL
     Route: 062
     Dates: end: 20071101

REACTIONS (3)
  - APPLICATION SITE REACTION [None]
  - SKIN CANCER [None]
  - SQUAMOUS CELL CARCINOMA [None]
